FAERS Safety Report 7961300-1 (Version None)
Quarter: 2011Q4

REPORT INFORMATION
  Report Type: 
  Country: None (occurrence: None)
  Receive Date: 20111202
  Receipt Date: 20111123
  Transmission Date: 20120403
  Serious: Yes (Death, Other)
  Sender: FDA-Public Use
  Company Number: 1000025739

PATIENT
  Sex: Male

DRUGS (6)
  1. SITAGLIPTIN (SITAGLIPTIN) (SITAGLIPTIN) [Concomitant]
  2. NAMENDA [Suspect]
     Dosage: 10 MG BID (10 MG,2 IN 1 D)
  3. QUETIAPINE (QUETIAPINE) (QUETIAPINE) [Concomitant]
  4. DONEPEZIL (DONEPEZIL) (DONEPEZIL) [Concomitant]
  5. PIOGLITAZONE (PIOGLITAZONE) (PIOGLITAZONE) [Concomitant]
  6. DARIFENACIN (DARIFENACIN) (DARIFENACIN) [Concomitant]

REACTIONS (2)
  - DRUG LEVEL INCREASED [None]
  - MYOCARDIAL INFARCTION [None]
